FAERS Safety Report 17139454 (Version 1)
Quarter: 2019Q4

REPORT INFORMATION
  Report Type: Spontaneous
  Country: US (occurrence: US)
  Receive Date: 20191210
  Receipt Date: 20191210
  Transmission Date: 20200122
  Serious: Yes (Death)
  Sender: FDA-Public Use
  Company Number: None

PATIENT
  Age: 79 Year
  Sex: Female
  Weight: 68.4 kg

DRUGS (9)
  1. RANITIDINE. [Concomitant]
     Active Substance: RANITIDINE
  2. LEVEMIR [Concomitant]
     Active Substance: INSULIN DETEMIR
  3. NIFEDIPINE. [Concomitant]
     Active Substance: NIFEDIPINE
  4. ARIMIDEX [Concomitant]
     Active Substance: ANASTROZOLE
  5. IBRANCE [Suspect]
     Active Substance: PALBOCICLIB
     Indication: BREAST CANCER
     Dosage: ?          OTHER FREQUENCY:DAILY X21DAYS, 7;?
     Route: 048
  6. VITAMIN D [Concomitant]
     Active Substance: VITAMIN D NOS
  7. DEXAMETHASONE. [Concomitant]
     Active Substance: DEXAMETHASONE
  8. ZOMETA [Concomitant]
     Active Substance: ZOLEDRONIC ACID
  9. ELIQUIS [Concomitant]
     Active Substance: APIXABAN

REACTIONS (1)
  - Death [None]
